FAERS Safety Report 7056626-2 (Version None)
Quarter: 2010Q4

REPORT INFORMATION
  Report Type: 
  Country: None (occurrence: None)
  Receive Date: 20101018
  Receipt Date: 20101001
  Transmission Date: 20110411
  Serious: Yes (Death, Other)
  Sender: FDA-Public Use
  Company Number: 2010AP001976

PATIENT
  Age: 20 Year
  Sex: Male

DRUGS (3)
  1. CITALOPRAM HYDROBROMIDE [Suspect]
  2. OXYBATE SODIUM (OXYBATE SODIUM) [Suspect]
  3. METHYLENEDIOXYMETHAMPHETAMNE (METHYLENEDIOXYMETHAMPHETAMINE) [Suspect]

REACTIONS (2)
  - DRUG TOXICITY [None]
  - OVERDOSE [None]
